FAERS Safety Report 7055302-X (Version None)
Quarter: 2010Q4

REPORT INFORMATION
  Report Type: 
  Country: None (occurrence: None)
  Receive Date: 20101021
  Receipt Date: 20101019
  Transmission Date: 20110411
  Serious: Yes (Other)
  Sender: FDA-Public Use
  Company Number: US-ASTRAZENECA-2010SE49180

PATIENT
  Age: 30 Year
  Sex: Male

DRUGS (9)
  1. MEROPENEM [Suspect]
     Indication: CYSTIC FIBROSIS
     Route: 042
  2. AZTREONAM [Suspect]
     Indication: CYSTIC FIBROSIS
  3. CEFTAZIDIME [Suspect]
     Indication: CYSTIC FIBROSIS
  4. GENTAMICIN [Suspect]
     Indication: CYSTIC FIBROSIS
  5. AMOXICILLIN [Concomitant]
     Indication: CYSTIC FIBROSIS
  6. CLARITHROMYCIN [Concomitant]
     Indication: CYSTIC FIBROSIS
  7. ERYTHROMYCIN [Concomitant]
     Indication: CYSTIC FIBROSIS
  8. FLUCLOXACILLIN [Concomitant]
     Indication: CYSTIC FIBROSIS
  9. TOBRAMYCIN [Concomitant]
     Indication: CYSTIC FIBROSIS

REACTIONS (1)
  - DRUG ERUPTION [None]
